FAERS Safety Report 5508748-2 (Version None)
Quarter: 2007Q4

REPORT INFORMATION
  Report Type: 
  Country: None (occurrence: None)
  Receive Date: 20071105
  Receipt Date: 20071022
  Transmission Date: 20080405
  Serious: Yes (Death, Hospitalization, Other)
  Sender: FDA-Public Use
  Company Number: A-US2007-17224

PATIENT
  Age: 74 Year
  Sex: Female
  Weight: 103.4 kg

DRUGS (21)
  1. TRACLEER [Suspect]
     Indication: PULMONARY HYPERTENSION
     Dosage: 125 MG, BID, ORAL; 62.5 MG, BID, ORAL
     Route: 048
     Dates: start: 20070712, end: 20070813
  2. TRACLEER [Suspect]
     Indication: PULMONARY HYPERTENSION
     Dosage: 125 MG, BID, ORAL; 62.5 MG, BID, ORAL
     Route: 048
     Dates: start: 20070814, end: 20071008
  3. ZAROXOLYN [Concomitant]
  4. CLOTRIMAZOLE [Concomitant]
  5. LISINOPRIL (LISINOPRIL DIHYDRATE) [Concomitant]
  6. SUCRALFATE [Concomitant]
  7. CHROMIUM (CHROMIUM) [Concomitant]
  8. EXTRA STRENGTH TYLENOL [Concomitant]
  9. ALLOPURINOL [Concomitant]
  10. ADVAIR DISKUS 100/50 [Concomitant]
  11. DETROL [Concomitant]
  12. PRILOSEC [Concomitant]
  13. OXYGEN (OXYGEN) [Concomitant]
  14. FLUOXETINE HCL [Concomitant]
  15. FERROUS GLUCONATE (FERROUS GLUCONATE) [Concomitant]
  16. ALBUTEROL (SALBUTAMOL SULFATE) [Concomitant]
  17. ATENOLOL [Concomitant]
  18. MULTIPLE VITAMINS (ASCORBIC ACID, ERGOCALCIFEROL, FOLIC ACID, RETINOL, [Concomitant]
  19. HUMULIN (INSULIN HUMAN INJECTION, ISOPHANE, INSULIN HUMAN ZINC SUSPENS [Concomitant]
  20. FUROSEMIDE (FUROSEMIDE SODIUM) [Concomitant]
  21. HYDROCODONE BITARTRATE (HYDROCODONE BITARTRATE) [Concomitant]

REACTIONS (13)
  - ALANINE AMINOTRANSFERASE INCREASED [None]
  - ASPARTATE AMINOTRANSFERASE INCREASED [None]
  - BLOOD ALKALINE PHOSPHATASE INCREASED [None]
  - CONSTIPATION [None]
  - FALL [None]
  - GASTROINTESTINAL HAEMORRHAGE [None]
  - GENERAL PHYSICAL HEALTH DETERIORATION [None]
  - HEPATIC FAILURE [None]
  - LOSS OF CONSCIOUSNESS [None]
  - LOWER LIMB FRACTURE [None]
  - MYOCARDIAL INFARCTION [None]
  - RENAL FAILURE [None]
  - RESPIRATORY FAILURE [None]
